FAERS Safety Report 6084228-3 (Version None)
Quarter: 2009Q1

REPORT INFORMATION
  Report Type: 
  Country: None (occurrence: None)
  Receive Date: 20090219
  Receipt Date: 20090212
  Transmission Date: 20090719
  Serious: Yes (Hospitalization)
  Sender: FDA-Public Use
  Company Number: FR-ROCHE-614370

PATIENT
  Sex: Female

DRUGS (4)
  1. RIVOTRIL [Suspect]
     Dosage: 10 DROPS AT LUNCH TIME AND IN THE EVENING
     Route: 048
     Dates: start: 20081113, end: 20081118
  2. RIVOTRIL [Suspect]
     Dosage: 6 DROPS IN THE MORNING, 6 DROPS AT LUNCH TIME AND 12 DROPS IN THE EVENING. DOSE INCREASED
     Route: 048
     Dates: start: 20081118, end: 20081119
  3. RIVOTRIL [Suspect]
     Dosage: 7 DROPS IN THE MORNING, 7 DROPS AT LUNCH TIME AND 15 DROPS IN THE EVENING. DOSE INCREASED
     Route: 048
     Dates: start: 20081119, end: 20081208
  4. INIPOMP [Concomitant]

REACTIONS (3)
  - BRONCHIAL OBSTRUCTION [None]
  - DYSPNOEA [None]
  - SOMNOLENCE [None]
